FAERS Safety Report 19884768 (Version 2)
Quarter: 2021Q4

REPORT INFORMATION
  Report Type: Spontaneous
  Country: NL (occurrence: NL)
  Receive Date: 20210927
  Receipt Date: 20211005
  Transmission Date: 20220303
  Serious: Yes (Other)
  Sender: FDA-Public Use
  Company Number: NL-ROCHE-2919290

PATIENT
  Sex: Male

DRUGS (4)
  1. MABTHERA [Suspect]
     Active Substance: RITUXIMAB
     Indication: Waldenstrom^s macroglobulinaemia
     Route: 065
     Dates: start: 2010
  2. LEUKERAN [Suspect]
     Active Substance: CHLORAMBUCIL
     Indication: Waldenstrom^s macroglobulinaemia
     Route: 048
     Dates: start: 2010
  3. BENDAMUSTINE [Suspect]
     Active Substance: BENDAMUSTINE
     Indication: Waldenstrom^s macroglobulinaemia
     Route: 042
  4. VITAMIN C [Concomitant]
     Active Substance: ASCORBIC ACID

REACTIONS (5)
  - Cardiac disorder [Unknown]
  - Palpitations [Unknown]
  - Dizziness [Unknown]
  - Fatigue [Unknown]
  - Cardiac discomfort [Unknown]
